FAERS Safety Report 7053551-8 (Version None)
Quarter: 2010Q4

REPORT INFORMATION
  Report Type: 
  Country: None (occurrence: None)
  Receive Date: 20101020
  Receipt Date: 20101018
  Transmission Date: 20110411
  Serious: Yes (Life-Threatening)
  Sender: FDA-Public Use
  Company Number: FR-EISAI INC.-E2020-07749-SPO-FR

PATIENT
  Sex: Female

DRUGS (5)
  1. ARICEPT [Suspect]
     Route: 048
     Dates: start: 20081201, end: 20100323
  2. MEMANTINE HCL [Suspect]
     Route: 048
     Dates: start: 20081201, end: 20100323
  3. EFFEXOR [Suspect]
     Indication: DEPRESSION
     Route: 048
     Dates: start: 20081201, end: 20100323
  4. NITRODERM [Suspect]
     Indication: PRODUCT USED FOR UNKNOWN INDICATION
     Route: 062
     Dates: start: 20100322
  5. XANAX [Concomitant]
     Indication: ANXIETY
     Route: 048
     Dates: start: 20101012

REACTIONS (1)
  - CARDIO-RESPIRATORY ARREST [None]
